FAERS Safety Report 18066654 (Version 2)
Quarter: 2020Q3

REPORT INFORMATION
  Report Type: Spontaneous
  Country: DE (occurrence: DE)
  Receive Date: 20200724
  Receipt Date: 20200824
  Transmission Date: 20201103
  Serious: Yes (Death, Hospitalization, Other)
  Sender: FDA-Public Use
  Company Number: DE-SEBELA IRELAND LIMITED-2020SEB00090

PATIENT
  Age: 55 Year

DRUGS (13)
  1. PREDNISOLONE. [Concomitant]
     Active Substance: PREDNISOLONE
     Route: 065
  2. AZATHIOPRINE. [Suspect]
     Active Substance: AZATHIOPRINE
     Indication: VASCULITIS
     Dosage: 100 MG, 1X/DAY
     Route: 048
  3. ALLOPURINOL. [Suspect]
     Active Substance: ALLOPURINOL
     Indication: GOUT
     Route: 065
  4. ^HCT^ [Concomitant]
     Route: 065
  5. QUENSYL [Concomitant]
     Active Substance: HYDROXYCHLOROQUINE
     Route: 065
  6. DEKRISTOL [Concomitant]
     Active Substance: CHOLECALCIFEROL
     Route: 065
  7. RAMIPRIL. [Concomitant]
     Active Substance: RAMIPRIL
     Route: 065
  8. ^COLCHYSAT^ [Concomitant]
     Route: 065
  9. AGGRENOX [Concomitant]
     Active Substance: ASPIRIN\DIPYRIDAMOLE
     Route: 065
  10. FALITHROM [Concomitant]
     Active Substance: PHENPROCOUMON
     Route: 065
  11. METOPROLOL. [Concomitant]
     Active Substance: METOPROLOL
     Route: 065
  12. ^UNSPECIFIED NEPHROLOGICAL TREATMENT^ [Concomitant]
     Route: 065
  13. ^UNSPECIFIED RHEUMATOLOGICAL TREATMENT^ [Concomitant]
     Route: 065

REACTIONS (20)
  - Pancytopenia [Recovered/Resolved]
  - Blindness cortical [Unknown]
  - Acute respiratory failure [Unknown]
  - Delirium [Unknown]
  - Muscle rupture [Unknown]
  - Speech disorder [Unknown]
  - Pneumonia [Unknown]
  - Coagulopathy [Unknown]
  - Hemiparesis [Unknown]
  - Cerebral ischaemia [Unknown]
  - Sepsis [Unknown]
  - Motor dysfunction [Unknown]
  - Hallucination [Unknown]
  - Drug interaction [Unknown]
  - Seizure [Fatal]
  - Abscess [Unknown]
  - Cerebral infarction [Unknown]
  - Cholecystitis acute [Unknown]
  - Cardiac failure [Fatal]
  - Cholelithiasis [Unknown]
